FAERS Safety Report 8973938 (Version 1)
Quarter: 2012Q4

REPORT INFORMATION
  Report Type: 
  Country: NL (occurrence: NL)
  Receive Date: 20121218
  Receipt Date: 20121218
  Transmission Date: 20130627
  Serious: Yes (Death, Other)
  Sender: FDA-Public Use
  Company Number: NL-PFIZER INC-2012304347

PATIENT
  Age: 65 Year
  Sex: Female
  Weight: 50 kg

DRUGS (3)
  1. FRAGMIN [Suspect]
     Indication: PROPHYLAXIS
     Dosage: 7500 IU, 2x/day
     Dates: start: 20120512, end: 20120514
  2. SELOKEEN [Concomitant]
     Indication: CARDIAC DISORDER
     Dosage: 50 mg, 1x/day
     Dates: start: 20120512, end: 20120514
  3. RENVELA [Concomitant]
     Dosage: 1600 mg, 3x/day

REACTIONS (6)
  - Thrombosis [Fatal]
  - Haemorrhage [Fatal]
  - Arterial rupture [Unknown]
  - Haematoma [Unknown]
  - Cyanosis [Unknown]
  - Pain [Unknown]
